FAERS Safety Report 15498788 (Version 1)
Quarter: 2018Q4

REPORT INFORMATION
  Report Type: Spontaneous
  Country: US (occurrence: US)
  Receive Date: 20181005
  Receipt Date: 20181005
  Transmission Date: 20190205
  Serious: Yes (Hospitalization)
  Sender: FDA-Public Use
  Company Number: None

PATIENT
  Age: 80 Year
  Sex: Male
  Weight: 77.8 kg

DRUGS (1)
  1. CARBOPLATIN. [Suspect]
     Active Substance: CARBOPLATIN
     Indication: LARYNGEAL CANCER
     Dosage: ?          OTHER STRENGTH:10 MG/ML 60ML VIAL;OTHER FREQUENCY:WEEKLY DAY 1, 15, ;?
     Route: 042
     Dates: start: 20180515, end: 20181002

REACTIONS (3)
  - Burning sensation [None]
  - Erythema [None]
  - Pruritus [None]

NARRATIVE: CASE EVENT DATE: 20181002
